FAERS Safety Report 19470852 (Version 1)
Quarter: 2021Q2

REPORT INFORMATION
  Report Type: Spontaneous
  Country: US (occurrence: US)
  Receive Date: 20210628
  Receipt Date: 20210628
  Transmission Date: 20210717
  Serious: No
  Sender: FDA-Public Use
  Company Number: None

PATIENT
  Age: 75 Year
  Sex: Female

DRUGS (1)
  1. DIMETHYL FUMARATE DR STARTER [Suspect]
     Active Substance: DIMETHYL FUMARATE
     Route: 048
     Dates: start: 202105, end: 202105

REACTIONS (2)
  - Rectal haemorrhage [None]
  - Therapy cessation [None]

NARRATIVE: CASE EVENT DATE: 20210510
